FAERS Safety Report 7734335-1 (Version None)
Quarter: 2011Q3

REPORT INFORMATION
  Report Type: 
  Country: None (occurrence: None)
  Receive Date: 20110817
  Receipt Date: 20110228
  Transmission Date: 20111222
  Serious: Yes (Other)
  Sender: FDA-Public Use
  Company Number: 201110212

PATIENT
  Age: 42 Year
  Sex: Male

DRUGS (1)
  1. LIORESAL [Suspect]
     Indication: MUSCLE SPASTICITY
     Dosage: 540 MCG, DAILY, INTRATHECAL
     Route: 037

REACTIONS (3)
  - MUSCLE SPASTICITY [None]
  - BURNING SENSATION [None]
  - PAIN IN EXTREMITY [None]
